FAERS Safety Report 23311185 (Version 1)
Quarter: 2023Q4

REPORT INFORMATION
  Report Type: Report from Study
  Country: US (occurrence: US)
  Receive Date: 20231219
  Receipt Date: 20231219
  Transmission Date: 20240109
  Serious: Yes (Other)
  Sender: FDA-Public Use
  Company Number: US-ABBVIE-5488483

PATIENT
  Sex: Male

DRUGS (1)
  1. HUMIRA [Suspect]
     Active Substance: ADALIMUMAB
     Indication: Colitis ulcerative
     Dosage: FORM STRENGTH: 40 MG?CITRATE FREE
     Route: 058
     Dates: start: 20201021

REACTIONS (8)
  - Nephrolithiasis [Recovered/Resolved]
  - Back pain [Unknown]
  - Gait inability [Not Recovered/Not Resolved]
  - Joint effusion [Recovering/Resolving]
  - Bone fragmentation [Unknown]
  - Prostate cancer [Unknown]
  - Arthritis [Unknown]
  - Cartilage injury [Recovering/Resolving]

NARRATIVE: CASE EVENT DATE: 20230101
